FAERS Safety Report 18822945 (Version 3)
Quarter: 2021Q1

REPORT INFORMATION
  Report Type: Spontaneous
  Country: CN (occurrence: CN)
  Receive Date: 20210202
  Receipt Date: 20210324
  Transmission Date: 20210419
  Serious: Yes (Hospitalization)
  Sender: FDA-Public Use
  Company Number: CN-BAYER-2021-048315

PATIENT
  Age: 57 Year
  Sex: Female
  Weight: 53 kg

DRUGS (3)
  1. AVELOX [Suspect]
     Active Substance: MOXIFLOXACIN HYDROCHLORIDE
     Indication: BRONCHIECTASIS
     Dosage: 0.4 G, QD
     Route: 048
     Dates: start: 20201202, end: 20201202
  2. AVELOX [Suspect]
     Active Substance: MOXIFLOXACIN HYDROCHLORIDE
     Indication: BRONCHITIS
  3. MEPTIN [Suspect]
     Active Substance: PROCATEROL HYDROCHLORIDE
     Indication: BRONCHITIS
     Dosage: 50 MG, QD
     Route: 048
     Dates: start: 20201202, end: 20201202

REACTIONS (8)
  - Syncope [Recovered/Resolved]
  - Asthenia [None]
  - Dizziness [None]
  - Epistaxis [None]
  - Skeletal injury [None]
  - Nausea [None]
  - Hyperhidrosis [None]
  - Headache [None]

NARRATIVE: CASE EVENT DATE: 20201202
